FAERS Safety Report 7064675-3 (Version None)
Quarter: 2010Q4

REPORT INFORMATION
  Report Type: 
  Country: None (occurrence: None)
  Receive Date: 20101022
  Receipt Date: 20101022
  Transmission Date: 20110411
  Serious: Yes (Other)
  Sender: FDA-Public Use
  Company Number: None

PATIENT
  Sex: Female

DRUGS (2)
  1. TYKERB [Suspect]
     Dosage: SEE IMAGE
     Route: 048
  2. XELODA [Suspect]
     Dosage: 2 TABS IN AM  3 TABS IN PM DAILY FOR 14 DAYS

REACTIONS (1)
  - HEPATITIS C [None]
